FAERS Safety Report 17698836 (Version 1)
Quarter: 2020Q2

REPORT INFORMATION
  Report Type: Report from Study
  Country: US (occurrence: US)
  Receive Date: 20200423
  Receipt Date: 20200423
  Transmission Date: 20200714
  Serious: Yes (Other)
  Sender: FDA-Public Use
  Company Number: US-MYLANLABS-2018M1060171

PATIENT
  Sex: Female
  Weight: 78 kg

DRUGS (1)
  1. GLATIRAMER ACETATE INJECTION [Suspect]
     Active Substance: GLATIRAMER ACETATE
     Indication: RELAPSING-REMITTING MULTIPLE SCLEROSIS
     Dosage: 40 MG, 3XW
     Route: 058

REACTIONS (16)
  - Injection site haemorrhage [Unknown]
  - Balance disorder [Unknown]
  - Injection site erythema [Not Recovered/Not Resolved]
  - Urticaria [Not Recovered/Not Resolved]
  - Fall [Not Recovered/Not Resolved]
  - Hypoaesthesia [Unknown]
  - Gait disturbance [Not Recovered/Not Resolved]
  - Paraesthesia [Unknown]
  - Malaise [Not Recovered/Not Resolved]
  - Feeling cold [Unknown]
  - Feeling abnormal [Unknown]
  - Feeling hot [Unknown]
  - Product dose omission [Unknown]
  - Multiple sclerosis relapse [Unknown]
  - Injection site pruritus [Not Recovered/Not Resolved]
  - Wrong technique in product usage process [Unknown]
